FAERS Safety Report 12009713 (Version 2)
Quarter: 2016Q1

REPORT INFORMATION
  Report Type: Report from Study
  Country: CN (occurrence: CN)
  Receive Date: 20160205
  Receipt Date: 20160229
  Transmission Date: 20160526
  Serious: No
  Sender: FDA-Public Use
  Company Number: CN-009507513-1602CHN002469

PATIENT
  Sex: Female

DRUGS (1)
  1. MARVELON [Suspect]
     Active Substance: DESOGESTREL\ETHINYL ESTRADIOL
     Dosage: TAKEN AT SAME TIME EVERY DAY FOR 21 DAYS, AND THEN WITHHELD FOR 7 DAYS
     Route: 048

REACTIONS (3)
  - Unintended pregnancy [Recovered/Resolved]
  - Drug dose omission [Unknown]
  - Pregnancy on oral contraceptive [Recovered/Resolved]
